FAERS Safety Report 7299019-5 (Version None)
Quarter: 2011Q1

REPORT INFORMATION
  Report Type: 
  Country: None (occurrence: None)
  Receive Date: 20110209
  Receipt Date: 20110125
  Transmission Date: 20110831
  Serious: Yes (Other)
  Sender: FDA-Public Use
  Company Number: 2011AP000127

PATIENT
  Age: 39 Year
  Sex: Male

DRUGS (1)
  1. CITALOPRAM (CITALOPRAM) [Suspect]
     Indication: PRODUCT USED FOR UNKNOWN INDICATION
     Dosage: 20 MG;QD

REACTIONS (7)
  - SOMNOLENCE [None]
  - HYPERTENSION [None]
  - WITHDRAWAL SYNDROME [None]
  - DISTURBANCE IN ATTENTION [None]
  - LETHARGY [None]
  - HEADACHE [None]
  - DIZZINESS [None]
